FAERS Safety Report 24254065 (Version 2)
Quarter: 2024Q3

REPORT INFORMATION
  Report Type: Spontaneous
  Country: US (occurrence: US)
  Receive Date: 20240827
  Receipt Date: 20240829
  Transmission Date: 20241017
  Serious: Yes (Other)
  Sender: BIOVITRUM
  Company Number: US-BIOVITRUM-2024-US-011276

PATIENT
  Age: 6 Decade
  Sex: Female

DRUGS (3)
  1. PACRITINIB [Suspect]
     Active Substance: PACRITINIB
     Indication: Myelofibrosis
     Dosage: TWICE DAILY
  2. PACRITINIB [Suspect]
     Active Substance: PACRITINIB
     Indication: Thrombocytopenia
     Dosage: TWICE DAILY (BID)
  3. ISAVUCONAZOLE [Interacting]
     Active Substance: ISAVUCONAZOLE
     Indication: Prophylaxis

REACTIONS (6)
  - Thrombocytopenia [Unknown]
  - COVID-19 [Unknown]
  - Alanine aminotransferase increased [Unknown]
  - Aspartate aminotransferase increased [Unknown]
  - Off label use [Unknown]
  - Drug interaction [Unknown]
